FAERS Safety Report 5917654-0 (Version None)
Quarter: 2008Q4

REPORT INFORMATION
  Report Type: 
  Country: None (occurrence: None)
  Receive Date: 20081010
  Receipt Date: 20081010
  Transmission Date: 20090506
  Serious: Yes (Other)
  Sender: FDA-Public Use
  Company Number: None

PATIENT
  Sex: Female

DRUGS (1)
  1. FLUNISOLIDE [Suspect]
     Indication: MULTIPLE ALLERGIES
     Dosage: 2 SPRAYS TWICE DAILY INTRANASAL
     Route: 045
     Dates: start: 20080512, end: 20080831

REACTIONS (6)
  - NASAL CONGESTION [None]
  - NASAL DISCOMFORT [None]
  - PRODUCT QUALITY ISSUE [None]
  - RHINALGIA [None]
  - SINUS DISORDER [None]
  - SWELLING [None]
